FAERS Safety Report 4548367-8 (Version None)
Quarter: 2004Q4

REPORT INFORMATION
  Report Type: 
  Country: None (occurrence: None)
  Receive Date: 20041227
  Receipt Date: 20040916
  Transmission Date: 20050328
  Serious: No
  Sender: FDA-Public Use
  Company Number: 04P-163-0273723-00

PATIENT
  Age: 81 Year
  Sex: Male
  Weight: 64.8644 kg

DRUGS (7)
  1. HUMIRA [Suspect]
     Indication: PSORIATIC ARTHROPATHY
     Dosage: 40 MG, 1 IN 2 WK, SUBCUTANEOUS
     Route: 058
     Dates: start: 20030101
  2. VERAPAMIL [Concomitant]
  3. TRIAMTERENE [Concomitant]
  4. DIGOXIN [Concomitant]
  5. MULTI-VITAMINS [Concomitant]
  6. GLUCOSAMINE [Concomitant]
  7. CALCIUM CARBONATE [Concomitant]

REACTIONS (2)
  - PRURITUS [None]
  - RENAL CELL CARCINOMA STAGE UNSPECIFIED [None]
